FAERS Safety Report 13003248 (Version 2)
Quarter: 2017Q1

REPORT INFORMATION
  Report Type: Spontaneous
  Country: US (occurrence: US)
  Receive Date: 20161206
  Receipt Date: 20170314
  Transmission Date: 20170428
  Serious: Yes (Other)
  Sender: FDA-Public Use
  Company Number: US-ALLERGAN-1678433CX

PATIENT
  Age: 35 Year
  Sex: Female

DRUGS (6)
  1. CETAPHIL CLEANSER [Concomitant]
     Indication: PROPHYLAXIS
     Dosage: UNK
     Route: 061
  2. CERAVE MOISTURIZER [Concomitant]
     Active Substance: OCTINOXATE\TITANIUM DIOXIDE\ZINC OXIDE
     Indication: PROPHYLAXIS
     Route: 061
  3. REVISION INTELLISHADE SPF 47 [Concomitant]
     Indication: PROPHYLAXIS
     Dosage: UNK
     Route: 061
  4. SKINMEDICA TNS RECOVERY COMPLEX [Suspect]
     Active Substance: COSMETICS
     Indication: PROPHYLAXIS
     Dosage: UNK, BID
     Route: 061
     Dates: start: 20160803, end: 20161005
  5. VITAMIN D                          /00107901/ [Concomitant]
     Active Substance: ERGOCALCIFEROL
     Indication: PRODUCT USED FOR UNKNOWN INDICATION
  6. BEYAZ [Concomitant]
     Active Substance: DROSPIRENONE\ETHINYL ESTRADIOL\LEVOMEFOLATE CALCIUM
     Indication: CONTRACEPTION
     Dosage: UNK
     Route: 048

REACTIONS (3)
  - Pain [Not Recovered/Not Resolved]
  - Basal cell carcinoma [Recovered/Resolved with Sequelae]
  - Scar [Not Recovered/Not Resolved]

NARRATIVE: CASE EVENT DATE: 20161110
